FAERS Safety Report 25417833 (Version 1)
Quarter: 2025Q2

REPORT INFORMATION
  Report Type: Spontaneous
  Country: US (occurrence: None)
  Receive Date: 20250609
  Receipt Date: 20250609
  Transmission Date: 20250716
  Serious: Yes (Hospitalization, Disabling, Other)
  Sender: FDA-CTU
  Company Number: None

PATIENT
  Age: 64 Year
  Sex: Female
  Weight: 79.38 kg

DRUGS (7)
  1. WEGOVY [Suspect]
     Active Substance: SEMAGLUTIDE
     Indication: Weight decreased
     Dosage: FREQUENCY : WEEKLY;?
     Dates: start: 20240506, end: 20250426
  2. ZETIA [Concomitant]
     Active Substance: EZETIMIBE
  3. LANSOPRAZOLE [Concomitant]
     Active Substance: LANSOPRAZOLE
  4. LEVOTHYROXINE [Concomitant]
     Active Substance: LEVOTHYROXINE
  5. COENZYME Q10 [Concomitant]
     Active Substance: DIETARY SUPPLEMENT\UBIDECARENONE
  6. VITAMINS [Concomitant]
     Active Substance: VITAMINS
  7. ASPIRIN [Suspect]
     Active Substance: ASPIRIN

REACTIONS (1)
  - Optic ischaemic neuropathy [None]

NARRATIVE: CASE EVENT DATE: 20250428
